FAERS Safety Report 9509511 (Version 1)
Quarter: 2013Q1

REPORT INFORMATION
  Report Type: Spontaneous
  Country: US (occurrence: None)
  Receive Date: 20130305
  Receipt Date: 20130305
  Transmission Date: 20140127
  Serious: Yes (Other)
  Sender: FDA-Public Use
  Company Number: 163-21880-12071587

PATIENT
  Age: 82 Year
  Sex: Male

DRUGS (4)
  1. REVLIMID (LENALIDOMIDE) (CAPSULES) [Suspect]
     Indication: PLASMA CELL MYELOMA
     Dosage: 1 IN 1 D
     Route: 048
     Dates: start: 20070517
  2. DECADRON [Concomitant]
  3. FENTANYL (FENTANYL) (POULTICE OR PATCH) [Concomitant]
  4. None [Concomitant]

REACTIONS (3)
  - Pancytopenia [None]
  - Weight decreased [None]
  - Nausea [None]
